FAERS Safety Report 9011027 (Version 1)
Quarter: 2013Q1

REPORT INFORMATION
  Report Type: Spontaneous
  Country: US (occurrence: US)
  Receive Date: 20130109
  Receipt Date: 20130109
  Transmission Date: 20140127
  Serious: No
  Sender: FDA-Public Use
  Company Number: US-ASTRAZENECA-2013SE00765

PATIENT
  Age: 65 Year
  Sex: Female
  Weight: 99.8 kg

DRUGS (10)
  1. ZAFIRLUKAST [Suspect]
     Indication: CHRONIC OBSTRUCTIVE PULMONARY DISEASE
     Route: 048
     Dates: start: 20121202
  2. VIT D [Concomitant]
  3. LOSARTIN [Concomitant]
  4. FOLIC ACID [Concomitant]
  5. METHOTREXATE [Concomitant]
  6. PROAIR [Concomitant]
  7. CARBAMAZAPINE [Concomitant]
     Indication: EPILEPSY
  8. ATORVASTATIN [Concomitant]
  9. GLYPIZIDE [Concomitant]
     Indication: TYPE 2 DIABETES MELLITUS
  10. TYLENOL [Concomitant]
     Indication: RHEUMATOID ARTHRITIS

REACTIONS (4)
  - Throat irritation [Not Recovered/Not Resolved]
  - Dysphonia [Unknown]
  - Pruritus genital [Not Recovered/Not Resolved]
  - Therapeutic response unexpected [Unknown]
